FAERS Safety Report 20933149 (Version 1)
Quarter: 2022Q2

REPORT INFORMATION
  Report Type: Spontaneous
  Country: US (occurrence: None)
  Receive Date: 20220607
  Receipt Date: 20220607
  Transmission Date: 20220721
  Serious: Yes (Hospitalization, Disabling, Other)
  Sender: FDA-Public Use
  Company Number: None

PATIENT
  Age: 23 Year
  Sex: Female
  Weight: 65.32 kg

DRUGS (25)
  1. TRUVADA [Suspect]
     Active Substance: EMTRICITABINE\TENOFOVIR DISOPROXIL FUMARATE
     Indication: HIV infection
     Dosage: OTHER QUANTITY : 1 TABLET;?FREQUENCY : DAILY;?
     Route: 048
  2. FOLIC ACID [Concomitant]
     Active Substance: FOLIC ACID
  3. PANTOPRAZOLE [Concomitant]
     Active Substance: PANTOPRAZOLE
  4. EPIVIR [Concomitant]
     Active Substance: LAMIVUDINE
  5. LANTHANUM CARBONATE [Concomitant]
     Active Substance: LANTHANUM CARBONATE
  6. CALCIUM CARBONATE\ERGOCALCIFEROL\RETINOL [Concomitant]
     Active Substance: CALCIUM CARBONATE\ERGOCALCIFEROL\RETINOL
  7. NIFEDIPINE [Concomitant]
     Active Substance: NIFEDIPINE
  8. OXYCODONE [Concomitant]
     Active Substance: OXYCODONE
  9. TOPAMAX [Concomitant]
     Active Substance: TOPIRAMATE
  10. ZOFRAN [Concomitant]
     Active Substance: ONDANSETRON HYDROCHLORIDE
  11. TIVICAY [Concomitant]
     Active Substance: DOLUTEGRAVIR SODIUM
  12. VIREAD [Concomitant]
     Active Substance: TENOFOVIR DISOPROXIL FUMARATE
  13. LASIX [Concomitant]
     Active Substance: FUROSEMIDE
  14. BENADRYL [Concomitant]
     Active Substance: DIPHENHYDRAMINE HYDROCHLORIDE
  15. EXJADE [Concomitant]
     Active Substance: DEFERASIROX
  16. HYDROXYUREA [Concomitant]
     Active Substance: HYDROXYUREA
  17. FENTANYL TRANSDERMAL SYSTEM [Concomitant]
     Active Substance: FENTANYL
  18. ZANAFLEX [Concomitant]
     Active Substance: TIZANIDINE HYDROCHLORIDE
  19. RENVELA [Concomitant]
     Active Substance: SEVELAMER CARBONATE
  20. PAZEO [Concomitant]
     Active Substance: OLOPATADINE HYDROCHLORIDE
  21. SENOKOT [Concomitant]
     Active Substance: SENNOSIDES
  22. VITAMIN B [Concomitant]
     Active Substance: VITAMIN B
  23. CALCIUM [Concomitant]
     Active Substance: CALCIUM
  24. Peritoneal Dialysis [Concomitant]
  25. VOLTAREN [Concomitant]
     Active Substance: DICLOFENAC SODIUM

REACTIONS (4)
  - Urine output decreased [None]
  - Sickle cell anaemia with crisis [None]
  - Renal failure [None]
  - Product substitution issue [None]

NARRATIVE: CASE EVENT DATE: 20161112
